FAERS Safety Report 6633240-1 (Version None)
Quarter: 2010Q1

REPORT INFORMATION
  Report Type: 
  Country: None (occurrence: None)
  Receive Date: 20100312
  Receipt Date: 20100304
  Transmission Date: 20100710
  Serious: Yes (Hospitalization)
  Sender: FDA-Public Use
  Company Number: US-AMGEN-QUU397570

PATIENT
  Sex: Female

DRUGS (2)
  1. ENBREL [Suspect]
     Indication: RHEUMATOID ARTHRITIS
     Route: 058
     Dates: start: 20040224
  2. METHOTREXATE [Concomitant]
     Route: 048

REACTIONS (6)
  - ARTHRALGIA [None]
  - BACK PAIN [None]
  - FALL [None]
  - GAIT DISTURBANCE [None]
  - RHEUMATOID ARTHRITIS [None]
  - UPPER LIMB FRACTURE [None]
